FAERS Safety Report 6929547-0 (Version None)
Quarter: 2010Q3

REPORT INFORMATION
  Report Type: 
  Country: None (occurrence: None)
  Receive Date: 20100818
  Receipt Date: 20100806
  Transmission Date: 20110219
  Serious: Yes (Death, Hospitalization)
  Sender: FDA-Public Use
  Company Number: DE-JNJFOC-20100803058

PATIENT
  Sex: Male

DRUGS (2)
  1. ABCIXIMAB [Suspect]
     Indication: ACUTE MYOCARDIAL INFARCTION
  2. ABCIXIMAB [Suspect]

REACTIONS (7)
  - ANAEMIA [None]
  - FEMORAL ARTERY OCCLUSION [None]
  - INFARCTION [None]
  - MULTI-ORGAN DISORDER [None]
  - PNEUMONIA [None]
  - SEPSIS [None]
  - THROMBOCYTOPENIA [None]
